FAERS Safety Report 7451828-5 (Version None)
Quarter: 2011Q2

REPORT INFORMATION
  Report Type: 
  Country: None (occurrence: None)
  Receive Date: 20110502
  Receipt Date: 20100518
  Transmission Date: 20111010
  Serious: No
  Sender: FDA-Public Use
  Company Number: US-ASTRAZENECA-2010SE22793

PATIENT
  Sex: Female
  Weight: 72.6 kg

DRUGS (8)
  1. TRICOR [Concomitant]
  2. SEROQUEL [Concomitant]
  3. WELLBUTRIN [Concomitant]
  4. NEXIUM [Suspect]
     Route: 048
  5. VITAMIN D [Concomitant]
  6. CRESTOR [Concomitant]
  7. KLONIPAN [Concomitant]
  8. LEXAPRO [Concomitant]

REACTIONS (3)
  - CHEST PAIN [None]
  - DYSPEPSIA [None]
  - HYPERCHLORHYDRIA [None]
